FAERS Safety Report 25622897 (Version 1)
Quarter: 2025Q3

REPORT INFORMATION
  Report Type: Report from Study
  Country: EU (occurrence: EU)
  Receive Date: 20250730
  Receipt Date: 20250730
  Transmission Date: 20251021
  Serious: Yes (Hospitalization)
  Sender: ALNYLAM PHARMACEUTICALS
  Company Number: EU-ALNYLAM PHARMACEUTICALS, INC.-ALN-2025-004592

PATIENT

DRUGS (2)
  1. ONPATTRO [Suspect]
     Active Substance: PATISIRAN SODIUM
     Indication: Product used for unknown indication
     Dosage: 24.3 (UNITS NOT SPECIFIED), Q3W
     Route: 042
     Dates: start: 20250707, end: 20250707
  2. VITAMIN D [Concomitant]
     Active Substance: VITAMIN D NOS
     Indication: Amyloidosis
     Dosage: 2500 UNITS, QD
     Route: 048

REACTIONS (3)
  - Rib fracture [Recovering/Resolving]
  - Fall [Recovering/Resolving]
  - Intentional dose omission [Unknown]

NARRATIVE: CASE EVENT DATE: 20250701
